FAERS Safety Report 4593005-1 (Version None)
Quarter: 2005Q1

REPORT INFORMATION
  Report Type: 
  Country: None (occurrence: None)
  Receive Date: 20050125
  Receipt Date: 20040824
  Transmission Date: 20050727
  Serious: No
  Sender: FDA-Public Use
  Company Number: USA040876429

PATIENT
  Age: 60 Year
  Sex: Female

DRUGS (2)
  1. FORTEO [Suspect]
     Indication: OSTEOPOROSIS
     Dosage: 20 UG DAY
     Dates: start: 20030101
  2. LIPITOR [Concomitant]

REACTIONS (5)
  - HERPES ZOSTER [None]
  - HYPERAESTHESIA [None]
  - PRURITUS [None]
  - SKIN DISORDER [None]
  - SOMNOLENCE [None]
